FAERS Safety Report 7230344-X (Version None)
Quarter: 2011Q1

REPORT INFORMATION
  Report Type: 
  Country: None (occurrence: None)
  Receive Date: 20110118
  Receipt Date: 20110107
  Transmission Date: 20110831
  Serious: Yes (Hospitalization)
  Sender: FDA-Public Use
  Company Number: ZA-JNJFOC-20101107412

PATIENT
  Age: 63 Year
  Sex: Male
  Weight: 71.7 kg

DRUGS (11)
  1. AMITRIPTYLINE [Concomitant]
     Indication: PAIN
     Route: 048
  2. GOLIMUMAB [Suspect]
     Indication: RHEUMATOID ARTHRITIS
     Route: 058
  3. LEFLUNOMIDE [Concomitant]
     Indication: RHEUMATOID ARTHRITIS
     Route: 048
  4. ESOMEPRAZOLE [Concomitant]
     Indication: DYSPEPSIA
     Route: 048
  5. PREDNISONE [Concomitant]
     Indication: RHEUMATOID ARTHRITIS
     Route: 048
  6. TRAMADOL [Concomitant]
     Indication: PAIN
     Route: 048
  7. GOLIMUMAB [Suspect]
     Route: 058
  8. METHOTREXATE [Concomitant]
     Indication: RHEUMATOID ARTHRITIS
     Route: 048
  9. FOLIC ACID [Concomitant]
     Indication: RHEUMATOID ARTHRITIS
     Route: 048
  10. CELECOXIB [Concomitant]
     Indication: RHEUMATOID ARTHRITIS
     Route: 048
  11. ZOLPIDEM [Concomitant]
     Indication: INSOMNIA
     Route: 048

REACTIONS (3)
  - SEPSIS [None]
  - PNEUMONIA [None]
  - ATRIAL FIBRILLATION [None]
